FAERS Safety Report 10518564 (Version 3)
Quarter: 2014Q4

REPORT INFORMATION
  Report Type: Report from Study
  Country: US (occurrence: US)
  Receive Date: 20141015
  Receipt Date: 20141113
  Transmission Date: 20150528
  Serious: Yes (Hospitalization)
  Sender: FDA-Public Use
  Company Number: US-SA-2014SA139129

PATIENT
  Age: 78 Year
  Sex: Male
  Weight: 118.4 kg

DRUGS (17)
  1. ALL OTHER THERAPEUTIC PRODUCTS [Concomitant]
     Active Substance: UNSPECIFIED INGREDIENT
     Dates: start: 20121009
  2. AMARYL [Concomitant]
     Active Substance: GLIMEPIRIDE
     Dates: start: 20131211
  3. CALCIUM [Concomitant]
     Active Substance: CALCIUM
     Dates: start: 20080422
  4. LORAZEPAM. [Concomitant]
     Active Substance: LORAZEPAM
     Dates: start: 20140424
  5. OMEPRAZOLE. [Concomitant]
     Active Substance: OMEPRAZOLE
     Dates: start: 20131211
  6. NITROSTAT [Concomitant]
     Active Substance: NITROGLYCERIN
     Route: 060
     Dates: start: 20131010
  7. DEVICE NOS [Concomitant]
     Active Substance: DEVICE
     Dates: start: 20120810
  8. ZESTRIL [Concomitant]
     Active Substance: LISINOPRIL
     Dates: start: 20131211
  9. NOVOLOG [Suspect]
     Active Substance: INSULIN ASPART
     Route: 065
  10. IMDUR [Concomitant]
     Active Substance: ISOSORBIDE MONONITRATE
     Route: 048
  11. DESOXIMETASONE. [Concomitant]
     Active Substance: DESOXIMETASONE
     Dates: start: 20120215
  12. PROAIR HFA [Concomitant]
     Active Substance: ALBUTEROL SULFATE
     Dates: start: 20140227
  13. ASPIRIN. [Concomitant]
     Active Substance: ASPIRIN
     Dates: start: 20060807
  14. LANTUS [Suspect]
     Active Substance: INSULIN GLARGINE
     Indication: TYPE 2 DIABETES MELLITUS
     Dosage: DOSE:40 UNIT(S)
     Route: 065
     Dates: start: 20140821
  15. BUMETANIDE. [Concomitant]
     Active Substance: BUMETANIDE
     Dates: start: 20140603
  16. MOBIC [Concomitant]
     Active Substance: MELOXICAM
     Dates: start: 20131211
  17. LOPRESSOR [Concomitant]
     Active Substance: METOPROLOL TARTRATE
     Dates: start: 20131211

REACTIONS (4)
  - Blood glucose increased [Unknown]
  - Drug administration error [Unknown]
  - Myocardial infarction [Recovered/Resolved]
  - Peripheral swelling [Unknown]

NARRATIVE: CASE EVENT DATE: 20140926
